FAERS Safety Report 8350506-8 (Version None)
Quarter: 2012Q2

REPORT INFORMATION
  Report Type: 
  Country: None (occurrence: None)
  Receive Date: 20120510
  Receipt Date: 20120501
  Transmission Date: 20120825
  Serious: Yes (Hospitalization, Other)
  Sender: FDA-Public Use
  Company Number: US-BAYER-2012-043828

PATIENT
  Age: 16 Year
  Sex: Female
  Weight: 57.596 kg

DRUGS (3)
  1. DROSPIRENONE AND ETHINYL ESTRADIOL [Suspect]
  2. YAZ [Suspect]
     Indication: OVARIAN CYST
  3. NAPROXEN [Concomitant]
     Indication: MIGRAINE

REACTIONS (1)
  - DEEP VEIN THROMBOSIS [None]
